FAERS Safety Report 4458893-8 (Version None)
Quarter: 2004Q3

REPORT INFORMATION
  Report Type: 
  Country: None (occurrence: None)
  Receive Date: 20040920
  Receipt Date: 20040920
  Transmission Date: 20050211
  Serious: Yes (Hospitalization)
  Sender: FDA-Public Use
  Company Number: None

PATIENT
  Age: 43 Year
  Sex: Male
  Weight: 119.7496 kg

DRUGS (11)
  1. INFERGEN [Suspect]
     Indication: HEPATITIS C
     Dosage: 15MCG  TIW  SUBCUTANEOUS
     Route: 058
     Dates: start: 20031128, end: 20040907
  2. RIBAVIRIN [Suspect]
     Indication: HEPATITIS C
     Dosage: 600MG  BID  ORAL
     Route: 048
     Dates: start: 20030128, end: 20040907
  3. MICRONASE [Concomitant]
  4. PROZAC [Concomitant]
  5. TYLENOL [Concomitant]
  6. MULTI-VITAMINS [Concomitant]
  7. POTASSIUM CHLORIDE [Concomitant]
  8. LEVAQUIN [Concomitant]
  9. MICRONASE [Concomitant]
  10. PERCOCET [Concomitant]
  11. ZANTAC [Concomitant]

REACTIONS (11)
  - ABDOMINAL PAIN [None]
  - BLOOD GLUCOSE INCREASED [None]
  - CONSTIPATION [None]
  - DYSURIA [None]
  - HYPOKALAEMIA [None]
  - NAUSEA [None]
  - OBSTRUCTION [None]
  - POLLAKIURIA [None]
  - PYELONEPHRITIS [None]
  - PYREXIA [None]
  - VOMITING [None]
